FAERS Safety Report 11582134 (Version 1)
Quarter: 2015Q4

REPORT INFORMATION
  Report Type: Spontaneous
  Country: US (occurrence: US)
  Receive Date: 20151001
  Receipt Date: 20151001
  Transmission Date: 20160304
  Serious: No
  Sender: FDA-Public Use
  Company Number: US-ROCHE-676420

PATIENT
  Age: 58 Year
  Sex: Male

DRUGS (6)
  1. DIOVAN [Concomitant]
     Active Substance: VALSARTAN
     Route: 065
  2. METFORMIN [Concomitant]
     Active Substance: METFORMIN HYDROCHLORIDE
     Route: 065
  3. PEGASYS [Suspect]
     Active Substance: PEGINTERFERON ALFA-2A
     Indication: HEPATITIS C
     Dosage: FORM: PREFILLED SYRINGE, WEEK EIGHT OF THERAPY
     Route: 065
  4. SUBUTEX [Concomitant]
     Active Substance: BUPRENORPHINE HYDROCHLORIDE
     Dosage: DRUG REPORTED: SUBETEX
     Route: 065
  5. ALLOPURINOL. [Concomitant]
     Active Substance: ALLOPURINOL
     Route: 065
  6. RIBASPHERE [Suspect]
     Active Substance: RIBAVIRIN
     Indication: HEPATITIS C
     Dosage: FORM: WHITE CAPSULES, DOSE: DIVIDED DOSES, WEEK EIGHT OF THERAPY
     Route: 048

REACTIONS (9)
  - Nasopharyngitis [Not Recovered/Not Resolved]
  - Fatigue [Unknown]
  - Asthenia [Unknown]
  - Flatulence [Unknown]
  - Contusion [Unknown]
  - Hepatic enzyme abnormal [Unknown]
  - Anaemia [Not Recovered/Not Resolved]
  - Blood pressure decreased [Not Recovered/Not Resolved]
  - Dizziness [Not Recovered/Not Resolved]

NARRATIVE: CASE EVENT DATE: 20091211
